FAERS Safety Report 12652826 (Version 2)
Quarter: 2016Q3

REPORT INFORMATION
  Report Type: Spontaneous
  Country: JP (occurrence: JP)
  Receive Date: 20160815
  Receipt Date: 20160920
  Transmission Date: 20161109
  Serious: Yes (Hospitalization)
  Sender: FDA-Public Use
  Company Number: JP-NOVOPROD-504692

PATIENT
  Sex: Male
  Weight: 16 kg

DRUGS (1)
  1. NOVOEIGHT [Suspect]
     Active Substance: ANTIHEMOPHILIC FACTOR, HUMAN RECOMBINANT
     Indication: FACTOR VIII DEFICIENCY
     Dosage: 71 IU, QD
     Route: 042
     Dates: start: 201602

REACTIONS (3)
  - Device related infection [Recovered/Resolved]
  - Device related infection [Unknown]
  - Infection [Unknown]

NARRATIVE: CASE EVENT DATE: 20160804
